FAERS Safety Report 11756218 (Version 7)
Quarter: 2016Q2

REPORT INFORMATION
  Report Type: Report from Study
  Country: CA (occurrence: CA)
  Receive Date: 20151119
  Receipt Date: 20160401
  Transmission Date: 20160815
  Serious: Yes (Other)
  Sender: FDA-Public Use
  Company Number: CA-GILEAD-2015-0180737

PATIENT
  Age: 56 Year
  Sex: Male

DRUGS (5)
  1. SOFOSBUVIR [Suspect]
     Active Substance: SOFOSBUVIR
     Indication: CHRONIC HEPATITIS C
     Dosage: 400 MG, UNK
     Route: 048
     Dates: start: 20151029
  2. OXYNEO [Concomitant]
     Active Substance: OXYCODONE
     Route: 048
  3. IBAVYR [Suspect]
     Active Substance: RIBAVIRIN
     Indication: CHRONIC HEPATITIS C
     Dosage: 600 MG, UNK
     Route: 048
     Dates: start: 20151029
  4. IMOVANE [Concomitant]
     Active Substance: ZOPICLONE
  5. DIPHENHYDRAMINE. [Concomitant]
     Active Substance: DIPHENHYDRAMINE
     Route: 048

REACTIONS (15)
  - Decreased appetite [Unknown]
  - Feeding disorder [Unknown]
  - Anxiety [Unknown]
  - Vomiting [Unknown]
  - Irritability [Unknown]
  - Emotional distress [Not Recovered/Not Resolved]
  - Restlessness [Unknown]
  - Insomnia [Unknown]
  - Abdominal discomfort [Unknown]
  - Drug dose omission [Unknown]
  - Inappropriate schedule of drug administration [Unknown]
  - Affect lability [Unknown]
  - Crying [Unknown]
  - Malaise [Unknown]
  - Pain [Unknown]
